FAERS Safety Report 8341642-0 (Version None)
Quarter: 2012Q2

REPORT INFORMATION
  Report Type: 
  Country: None (occurrence: None)
  Receive Date: 20120507
  Receipt Date: 20120426
  Transmission Date: 20120825
  Serious: Yes (Death)
  Sender: FDA-Public Use
  Company Number: JP-ALEXION-A201200831

PATIENT
  Age: 75 Year
  Sex: Female

DRUGS (10)
  1. PREDNISOLONE [Suspect]
     Dosage: 10 MG, QD
     Dates: end: 20120416
  2. AMARYL [Concomitant]
     Dosage: 1 MG, QD
     Dates: end: 20120416
  3. ALENDRONATE SODIUM [Concomitant]
     Dosage: 35 MG, QD
     Dates: end: 20120416
  4. RABEPRAZOLE SODIUM [Concomitant]
     Dosage: 10 MG, QD
     Dates: end: 20120416
  5. METHYLCOBAL [Concomitant]
     Dosage: 1500 MG, QD
     Dates: end: 20120416
  6. URSO 250 [Concomitant]
     Dosage: 300 MG, QD
     Dates: end: 20120416
  7. SOLIRIS [Suspect]
     Indication: PAROXYSMAL NOCTURNAL HAEMOGLOBINURIA
     Dosage: 900 MG, Q2W
     Route: 042
     Dates: start: 20120409, end: 20120416
  8. CANDESARTAN CILEXETIL [Concomitant]
     Dosage: 8 MG, QD
     Dates: end: 20120416
  9. ATELEC [Concomitant]
     Dosage: 5 MG, QD
     Dates: end: 20120416
  10. PRIMOBOLAN-DEPOT INJ [Concomitant]
     Dosage: 10 MG, QD
     Dates: end: 20120416

REACTIONS (5)
  - CARDIAC VALVE DISEASE [None]
  - CHOLELITHIASIS [None]
  - SEPTIC SHOCK [None]
  - PRURITUS [None]
  - VOMITING [None]
